FAERS Safety Report 7218416-7 (Version None)
Quarter: 2011Q1

REPORT INFORMATION
  Report Type: 
  Country: None (occurrence: None)
  Receive Date: 20110110
  Receipt Date: 20110106
  Transmission Date: 20110831
  Serious: Yes (Death, Life-Threatening)
  Sender: FDA-Public Use
  Company Number: JP-PFIZER INC-2010121836

PATIENT
  Age: 78 Year
  Sex: Male
  Weight: 70 kg

DRUGS (20)
  1. DOPAMINE [Concomitant]
     Dosage: 10 ML/HR, 1X/DAY
     Route: 041
     Dates: start: 20100925, end: 20100925
  2. SOLU-CORTEF [Concomitant]
     Dosage: 100 MG, 2X/DAY
     Route: 042
     Dates: start: 20100925, end: 20100927
  3. ZYVOX [Suspect]
     Indication: STAPHYLOCOCCAL INFECTION
     Dosage: 600 MG, 2X/DAY
     Route: 041
     Dates: start: 20100925, end: 20100926
  4. MEROPENEM [Concomitant]
     Indication: PNEUMONIA
     Dosage: 0.5 G, 1X/DAY
     Route: 041
     Dates: start: 20100913, end: 20100913
  5. PENTCILLIN [Concomitant]
     Indication: PNEUMONIA
     Dosage: 2 G, 4X/DAY
     Route: 041
     Dates: start: 20100916, end: 20100921
  6. SEPAMIT [Concomitant]
     Dosage: 10 MG, 2X/DAY
     Route: 048
     Dates: start: 20100916, end: 20100920
  7. HEPARIN SODIUM [Concomitant]
     Dosage: 8 UNITS, 1X/DAY
     Route: 041
     Dates: start: 20100913, end: 20100928
  8. ZOSYN [Concomitant]
     Indication: PNEUMONIA
     Dosage: 4.5 G, 4X/DAY
     Route: 042
     Dates: start: 20100924, end: 20100930
  9. MICAFUNGIN SODIUM [Concomitant]
     Dosage: 50 MG, 1X/DAY
     Route: 042
     Dates: start: 20100924, end: 20100927
  10. CEFAZOLIN [Concomitant]
     Dosage: 1 G, 3X/DAY
     Route: 041
     Dates: start: 20100909, end: 20100912
  11. BROACT [Concomitant]
     Indication: PNEUMONIA
     Dosage: 1 G, 3X/DAY
     Route: 041
     Dates: start: 20100913, end: 20100915
  12. PITRESSIN [Concomitant]
     Dosage: 1.8 U/HR, 1X/DAY
     Route: 041
     Dates: start: 20100925, end: 20100925
  13. MEROPENEM [Concomitant]
     Dosage: 0.5 G, 3X/DAY
     Dates: start: 20100921, end: 20100924
  14. LASIX [Concomitant]
     Dosage: 1.5 ML, 1X/DAY
     Route: 041
     Dates: start: 20100925, end: 20100925
  15. FENTANYL [Concomitant]
     Dosage: 1 ML/HR, 1X/DAY
     Route: 041
     Dates: start: 20100925, end: 20100928
  16. MEYLON [Concomitant]
     Dosage: 125 ML, 1X/DAY
     Route: 042
     Dates: start: 20100925, end: 20100925
  17. ULCERLMIN [Concomitant]
     Dosage: 1 G, 3X/DAY
     Route: 048
     Dates: start: 20100913, end: 20101009
  18. LANSOPRAZOLE [Concomitant]
     Dosage: 15 MG, 1X/DAY
     Route: 048
     Dates: start: 20100913, end: 20100920
  19. ADRENALINE [Concomitant]
     Dosage: 2 MG/HR, 1X/DAY
     Route: 041
     Dates: start: 20100925, end: 20100928
  20. DORMICUM FOR INJECTION [Concomitant]
     Dosage: 5 MG/HR, 1X/DAY
     Route: 041
     Dates: start: 20100925, end: 20100928

REACTIONS (3)
  - VENTRICULAR TACHYCARDIA [None]
  - VENTRICULAR FIBRILLATION [None]
  - DUODENAL ULCER HAEMORRHAGE [None]
